FAERS Safety Report 18101817 (Version 2)
Quarter: 2021Q2

REPORT INFORMATION
  Report Type: Spontaneous
  Country: GB (occurrence: GB)
  Receive Date: 20200802
  Receipt Date: 20210511
  Transmission Date: 20210717
  Serious: Yes (Life-Threatening, Disabling, Congenital Anomaly, Other)
  Sender: FDA-Public Use
  Company Number: GB-UCBSA-2020029108

PATIENT
  Sex: Female
  Weight: 3.4 kg

DRUGS (3)
  1. FOLIC ACID. [Concomitant]
     Active Substance: FOLIC ACID
     Indication: PRODUCT USED FOR UNKNOWN INDICATION
     Dosage: HIGH DOSE TAKEN BY MOTHER
     Route: 064
  2. CARBAMAZEPINE. [Concomitant]
     Active Substance: CARBAMAZEPINE
     Indication: PRODUCT USED FOR UNKNOWN INDICATION
     Dosage: UNK
     Route: 064
  3. VIMPAT [Suspect]
     Active Substance: LACOSAMIDE
     Indication: EPILEPSY
     Dosage: 400
     Route: 064
     Dates: start: 20160501, end: 20161028

REACTIONS (34)
  - Syringomyelia [Unknown]
  - Hydrocephalus [Unknown]
  - Congenital tracheomalacia [Unknown]
  - Neurogenic bladder [Unknown]
  - Infantile apnoea [Unknown]
  - Neurogenic bowel [Unknown]
  - Cerebral ventricle dilatation [Unknown]
  - Tooth development disorder [Unknown]
  - Respiratory arrest [Unknown]
  - Developmental delay [Unknown]
  - Respiratory distress [Unknown]
  - Growth hormone deficiency [Unknown]
  - High arched palate [Unknown]
  - Pyloric stenosis [Unknown]
  - Anhidrosis [Unknown]
  - Hypercapnia [Unknown]
  - Hypoventilation [Unknown]
  - Urinary retention [Unknown]
  - Vomiting [Unknown]
  - Hypoxia [Unknown]
  - Congenital central nervous system anomaly [Unknown]
  - Arnold-Chiari malformation [Unknown]
  - Tethered cord syndrome [Unknown]
  - Microtia [Unknown]
  - Cardiac arrest [Unknown]
  - Multiple cardiac defects [Unknown]
  - Talipes [Unknown]
  - Dysmorphism [Unknown]
  - Hypotonia [Unknown]
  - Maternal exposure during pregnancy [Unknown]
  - Spina bifida [Not Recovered/Not Resolved]
  - Respiration abnormal [Unknown]
  - Hypopnoea [Unknown]
  - Premature baby [Unknown]

NARRATIVE: CASE EVENT DATE: 20170214
